FAERS Safety Report 4802435-1 (Version None)
Quarter: 2005Q4

REPORT INFORMATION
  Report Type: 
  Country: None (occurrence: None)
  Receive Date: 20051014
  Receipt Date: 20041010
  Transmission Date: 20060501
  Serious: Yes (Hospitalization, Other)
  Sender: FDA-Public Use
  Company Number: 2004076268

PATIENT
  Age: 69 Year
  Sex: Female
  Weight: 81.6475 kg

DRUGS (14)
  1. NEURONTIN [Suspect]
     Indication: PANIC ATTACK
     Dosage: 1800 MG (600 MG, 3 IN 1 D), ORAL
     Route: 048
     Dates: start: 20040101
  2. NEURONTIN [Suspect]
     Indication: PARTIAL SEIZURES
     Dosage: 1800 MG (600 MG, 3 IN 1 D), ORAL
     Route: 048
     Dates: start: 20040101
  3. SERTRALINE HCL [Concomitant]
  4. LOTREL [Concomitant]
  5. FUROSEMIDE [Concomitant]
  6. POTASSIUM (POTASSIUM) [Concomitant]
  7. ALL OTHER THERAPEUTIC PRODUCTS (ALL OTHER THERAPEUTIC PRODUCTS) [Concomitant]
  8. OXYCODONE HYDROCHLORIDE AND ACETAMINOPHEN [Concomitant]
  9. METHOTREXATE [Concomitant]
  10. VALDECOXIB [Concomitant]
  11. ASPIRIN [Concomitant]
  12. PANTOPRAZOLE SODIUM [Concomitant]
  13. CLONAZEPAM [Concomitant]
  14. PROMETHAZINE HYDROCHLORIDE TAB [Concomitant]

REACTIONS (1)
  - HEART RATE DECREASED [None]
